FAERS Safety Report 5106481-2 (Version None)
Quarter: 2006Q3

REPORT INFORMATION
  Report Type: 
  Country: None (occurrence: None)
  Receive Date: 20060918
  Receipt Date: 20060913
  Transmission Date: 20061208
  Serious: Yes (Hospitalization)
  Sender: FDA-Public Use
  Company Number: JP-AVENTIS-200612861JP

PATIENT
  Age: 88 Year
  Sex: Female

DRUGS (1)
  1. DAONIL [Suspect]

REACTIONS (3)
  - ATRIAL FIBRILLATION [None]
  - HYPOGLYCAEMIC ENCEPHALOPATHY [None]
  - VASCULAR ENCEPHALOPATHY [None]
